FAERS Safety Report 5263906-X (Version None)
Quarter: 2007Q1

REPORT INFORMATION
  Report Type: 
  Country: None (occurrence: None)
  Receive Date: 20070313
  Receipt Date: 20070227
  Transmission Date: 20070707
  Serious: Yes (Hospitalization, Other)
  Sender: FDA-Public Use
  Company Number: US-ELI_LILLY_AND_COMPANY-US200612003450

PATIENT
  Age: 83 Year
  Sex: Male

DRUGS (4)
  1. HUMULIN 70/30 [Suspect]
     Indication: DIABETES MELLITUS
     Dosage: 50 U, 2/D
     Dates: start: 19910101
  2. PERCOCET [Concomitant]
     Indication: PAIN
     Dosage: UNK, UNKNOWN
  3. SOMA [Concomitant]
     Dosage: UNK, UNKNOWN
  4. NEXIUM [Concomitant]
     Dosage: UNK, UNKNOWN

REACTIONS (4)
  - BLINDNESS UNILATERAL [None]
  - CEREBROVASCULAR ACCIDENT [None]
  - OPHTHALMOPLEGIA [None]
  - VISUAL ACUITY REDUCED [None]
